FAERS Safety Report 17761532 (Version 1)
Quarter: 2020Q2

REPORT INFORMATION
  Report Type: Spontaneous
  Country: TH (occurrence: TH)
  Receive Date: 20200508
  Receipt Date: 20200508
  Transmission Date: 20200714
  Serious: Yes (Other)
  Sender: FDA-Public Use
  Company Number: NVSC2020TH125368

PATIENT
  Sex: Female

DRUGS (1)
  1. ACETAMINOPHEN (PARACETAMOL) [Suspect]
     Active Substance: ACETAMINOPHEN
     Indication: PRODUCT USED FOR UNKNOWN INDICATION
     Dosage: 396.8 MG/KG (50 TABLETS)
     Route: 065

REACTIONS (4)
  - Methaemoglobinaemia [Recovered/Resolved]
  - Intentional overdose [Recovered/Resolved]
  - Hepatic enzyme increased [Unknown]
  - Haemolytic anaemia [Unknown]
